FAERS Safety Report 5487388-8 (Version None)
Quarter: 2007Q4

REPORT INFORMATION
  Report Type: 
  Country: None (occurrence: None)
  Receive Date: 20071016
  Receipt Date: 20071012
  Transmission Date: 20080405
  Serious: Yes (Hospitalization)
  Sender: FDA-Public Use
  Company Number: CA-BOEHRINGER INGELHEIM PHARMACEUTICALS, INC.-2007-UK-02476UK

PATIENT
  Sex: Male

DRUGS (8)
  1. AGGRENOX [Suspect]
     Indication: CEREBROVASCULAR ACCIDENT PROPHYLAXIS
     Dosage: BLINDED STUDY DRUG
     Route: 048
  2. MICARDIS [Suspect]
     Indication: CEREBROVASCULAR ACCIDENT PROPHYLAXIS
     Dosage: BLINDED STUDY DRUG
     Route: 048
  3. CLOPIDOGREL [Suspect]
     Indication: CEREBROVASCULAR ACCIDENT PROPHYLAXIS
     Dosage: BLINDED STUDY DRUG
     Route: 048
  4. PLACEBO (BLIND) [Suspect]
     Indication: CEREBROVASCULAR ACCIDENT PROPHYLAXIS
     Dosage: BLINDED STUDY DRUG
     Route: 048
  5. AMPICILLIN [Suspect]
     Route: 042
     Dates: start: 20070720
  6. GENTAMICIN [Suspect]
     Route: 042
     Dates: start: 20070721
  7. CIPROFLOXACIN [Suspect]
     Route: 048
     Dates: start: 20070720, end: 20070802
  8. FLOMAX [Suspect]
     Route: 048
     Dates: start: 20070720

REACTIONS (1)
  - PYELONEPHRITIS ACUTE [None]
